FAERS Safety Report 7814470-X (Version None)
Quarter: 2011Q4

REPORT INFORMATION
  Report Type: 
  Country: None (occurrence: None)
  Receive Date: 20111014
  Receipt Date: 20111010
  Transmission Date: 20120403
  Serious: Yes (Other)
  Sender: FDA-Public Use
  Company Number: PHHY2011DE13617

PATIENT
  Age: 58 Year
  Sex: Female

DRUGS (2)
  1. ZOLEDRONOC ACID [Suspect]
     Dosage: UNK
     Route: 042
     Dates: start: 20110211, end: 20110211
  2. ZOLEDRONOC ACID [Suspect]
     Indication: OSTEOPOROSIS
     Dosage: UNK
     Route: 042

REACTIONS (7)
  - PYREXIA [None]
  - PAIN [None]
  - DIZZINESS [None]
  - INFLUENZA LIKE ILLNESS [None]
  - SWELLING FACE [None]
  - DYSPNOEA [None]
  - APHTHOUS STOMATITIS [None]
